FAERS Safety Report 16445326 (Version 2)
Quarter: 2019Q3

REPORT INFORMATION
  Report Type: Spontaneous
  Country: CZ (occurrence: CZ)
  Receive Date: 20190618
  Receipt Date: 20190716
  Transmission Date: 20191004
  Serious: Yes (Life-Threatening, Other)
  Sender: FDA-Public Use
  Company Number: CZ-MYLANLABS-2019M1055736

PATIENT
  Age: 69 Year
  Sex: Male

DRUGS (23)
  1. OXALIPLATIN. [Suspect]
     Active Substance: OXALIPLATIN
     Dosage: AS PART OF FOLFOX PLUS BEVACIZUMAB
     Route: 065
     Dates: start: 20101129, end: 20110412
  2. OXALIPLATIN. [Suspect]
     Active Substance: OXALIPLATIN
     Dosage: AS PART OF FOLFOX4 PLUS BEVACIZUMAB
     Route: 065
     Dates: start: 20150311, end: 2015
  3. FOLINIC ACID [Suspect]
     Active Substance: LEUCOVORIN
     Dosage: UNK
     Route: 042
     Dates: start: 20150311
  4. 5-FLUOROURACIL                     /00098801/ [Suspect]
     Active Substance: FLUOROURACIL
     Indication: COLON CANCER METASTATIC
     Dosage: AS PART OF FOLFOX PLUS BEVACIZUMAB
     Route: 065
     Dates: start: 20101129, end: 20110412
  5. FOLINIC ACID [Suspect]
     Active Substance: LEUCOVORIN
     Dosage: AS PART OF FOLFIRI THERAPY
     Route: 065
     Dates: start: 201504, end: 201510
  6. 5-FLUOROURACIL                     /00098801/ [Suspect]
     Active Substance: FLUOROURACIL
     Dosage: AS PART OF FOLFIRI THERAPY
     Route: 065
     Dates: start: 20150414, end: 201510
  7. AVASTIN [Suspect]
     Active Substance: BEVACIZUMAB
     Indication: ADENOCARCINOMA
     Dosage: IN FOLFOX REGIMEN
     Route: 065
     Dates: start: 20150311, end: 20150414
  8. AVASTIN [Suspect]
     Active Substance: BEVACIZUMAB
     Dosage: AS PART OF FOLFOX4 PLUS BEVACIZUMAB
     Route: 065
     Dates: start: 20150311, end: 2015
  9. OXALIPLATIN. [Suspect]
     Active Substance: OXALIPLATIN
     Indication: COLON CANCER METASTATIC
     Dosage: UNK
     Route: 042
     Dates: start: 20101129, end: 20110412
  10. FOLINIC ACID [Suspect]
     Active Substance: LEUCOVORIN
     Indication: ADENOCARCINOMA
     Dosage: IN FOLFOX REGIMEN
     Route: 042
     Dates: start: 20150311, end: 20150414
  11. FLUOROURACIL. [Suspect]
     Active Substance: FLUOROURACIL
     Dosage: UNK, CYCLE
     Dates: start: 20150311
  12. ERBITUX [Concomitant]
     Active Substance: CETUXIMAB
     Dosage: UNK
     Route: 065
     Dates: start: 20150414, end: 201704
  13. OXALIPLATIN. [Suspect]
     Active Substance: OXALIPLATIN
     Indication: ADENOCARCINOMA
     Dosage: IN FOLFOX REGIMEN
     Route: 042
     Dates: start: 20150311, end: 20150414
  14. FOLINIC ACID [Suspect]
     Active Substance: LEUCOVORIN
     Indication: COLON CANCER METASTATIC
     Dosage: UNK
     Route: 042
     Dates: start: 20101129, end: 20110412
  15. FOLINIC ACID [Suspect]
     Active Substance: LEUCOVORIN
     Dosage: AS PART OF FOLFOX4 PLUS BEVACIZUMAB
     Route: 065
     Dates: start: 20150311, end: 2015
  16. 5-FLUOROURACIL                     /00098801/ [Suspect]
     Active Substance: FLUOROURACIL
     Dosage: AS PART OF FOLFOX4 PLUS BEVACIZUMAB
     Route: 065
     Dates: start: 20150311, end: 2015
  17. FOLINIC ACID [Suspect]
     Active Substance: LEUCOVORIN
     Dosage: AS PART OF FOLFOX PLUS BEVACIZUMAB
     Route: 065
     Dates: start: 20101129, end: 20110412
  18. AVASTIN [Suspect]
     Active Substance: BEVACIZUMAB
     Indication: COLON CANCER METASTATIC
     Dosage: AS PART OF FOLFOX PLUS BEVACIZUMAB
     Route: 065
     Dates: start: 20101129, end: 20110412
  19. FLUOROURACIL. [Suspect]
     Active Substance: FLUOROURACIL
     Indication: ADENOCARCINOMA
     Dosage: UNK, CYCLE
     Dates: start: 20101129, end: 20110412
  20. LONSURF [Concomitant]
     Active Substance: TIPIRACIL HYDROCHLORIDE\TRIFLURIDINE
     Dosage: UNK
  21. IRINOTECAN [Suspect]
     Active Substance: IRINOTECAN
     Indication: ADENOCARCINOMA
     Dosage: UNK
     Dates: start: 20101129, end: 20110412
  22. IRINOTECAN [Suspect]
     Active Substance: IRINOTECAN
     Dosage: UNK
     Dates: start: 20150311
  23. 5-FLUOROURACIL                     /00098801/ [Suspect]
     Active Substance: FLUOROURACIL
     Indication: ADENOCARCINOMA
     Dosage: IN FOLFOX REGIMEN
     Route: 065
     Dates: start: 20150311, end: 20150414

REACTIONS (5)
  - Cholecystitis acute [Unknown]
  - Haematotoxicity [Unknown]
  - Neutropenia [Unknown]
  - Anaemia [Unknown]
  - Gastrointestinal toxicity [Unknown]

NARRATIVE: CASE EVENT DATE: 20150311
